FAERS Safety Report 4510069-1 (Version None)
Quarter: 2004Q4

REPORT INFORMATION
  Report Type: 
  Country: None (occurrence: None)
  Receive Date: 20041124
  Receipt Date: 20041109
  Transmission Date: 20050328
  Serious: Yes (Hospitalization)
  Sender: FDA-Public Use
  Company Number: PHBS2004JP15119

PATIENT
  Age: 79 Year
  Sex: Female

DRUGS (1)
  1. LOCHOL [Suspect]
     Dosage: 20 MG/DAY
     Route: 048
     Dates: start: 19990101

REACTIONS (2)
  - FALL [None]
  - FRACTURE [None]
